FAERS Safety Report 8737793 (Version 2)
Quarter: 2013Q4

REPORT INFORMATION
  Report Type: Spontaneous
  Country: US (occurrence: US)
  Receive Date: 20120822
  Receipt Date: 20131105
  Transmission Date: 20140711
  Serious: Yes (Other)
  Sender: FDA-Public Use
  Company Number: US-009507513-1207USA011288

PATIENT
  Sex: Male

DRUGS (2)
  1. ZOCOR [Suspect]
     Dosage: 20 MG, QD
     Route: 048
  2. ATORVASTATIN [Suspect]

REACTIONS (3)
  - Gait disturbance [Unknown]
  - Myalgia [Unknown]
  - Neuropathy peripheral [Unknown]
